FAERS Safety Report 20295458 (Version 2)
Quarter: 2022Q1

REPORT INFORMATION
  Report Type: Spontaneous
  Country: US (occurrence: None)
  Receive Date: 20220104
  Receipt Date: 20220117
  Transmission Date: 20220424
  Serious: No
  Sender: FDA-Public Use
  Company Number: 2021A889828

PATIENT
  Age: 30631 Day
  Sex: Male
  Weight: 71.2 kg

DRUGS (1)
  1. BRILINTA [Suspect]
     Active Substance: TICAGRELOR
     Indication: Myocardial infarction
     Route: 048
     Dates: start: 20211127, end: 20211202

REACTIONS (5)
  - Diarrhoea haemorrhagic [Unknown]
  - Memory impairment [Unknown]
  - Inability to afford medication [Unknown]
  - Diarrhoea [Unknown]
  - Haemorrhage [Recovered/Resolved]

NARRATIVE: CASE EVENT DATE: 20211120
